FAERS Safety Report 7019526-X (Version None)
Quarter: 2010Q3

REPORT INFORMATION
  Report Type: 
  Country: None (occurrence: None)
  Receive Date: 20100923
  Receipt Date: 20100914
  Transmission Date: 20110219
  Serious: Yes (Other)
  Sender: FDA-Public Use
  Company Number: TRP_07257_2010

PATIENT
  Age: 55 Year
  Sex: Female
  Weight: 99 kg

DRUGS (4)
  1. RIBAVIRIN [Suspect]
     Indication: HEPATITIS C
     Dosage: 1200 MG, DAILY, 1000 MG, DAILY
  2. RIBAVIRIN [Suspect]
     Indication: HEPATITIS C
     Dosage: 1200 MG, DAILY, 1000 MG, DAILY
  3. PEG-INTRON [Suspect]
     Indication: HEPATITIS C
     Dosage: 150 ?G 1X/WEEK SUBCUTANEOUS; 120 ?G 1X/WEEK SUBCUTANEOUS
     Route: 058
  4. PEG-INTRON [Suspect]
     Indication: HEPATITIS C
     Dosage: 150 ?G 1X/WEEK SUBCUTANEOUS; 120 ?G 1X/WEEK SUBCUTANEOUS
     Route: 058

REACTIONS (7)
  - DIZZINESS [None]
  - DYSPNOEA [None]
  - HAEMOGLOBIN DECREASED [None]
  - PALPITATIONS [None]
  - SINUS TACHYCARDIA [None]
  - SYNCOPE [None]
  - VENTRICULAR EXTRASYSTOLES [None]
